FAERS Safety Report 23937547 (Version 1)
Quarter: 2024Q2

REPORT INFORMATION
  Report Type: Spontaneous
  Country: US (occurrence: None)
  Receive Date: 20240604
  Receipt Date: 20240604
  Transmission Date: 20240716
  Serious: Yes (Hospitalization)
  Sender: FDA-Public Use
  Company Number: None

PATIENT
  Sex: Male

DRUGS (1)
  1. PROLIA [Suspect]
     Active Substance: DENOSUMAB
     Indication: Osteoporosis
     Dosage: OTHER FREQUENCY : EVERY SIX MONTHS ;?
     Route: 058
     Dates: start: 202312

REACTIONS (7)
  - Weight increased [None]
  - Fatigue [None]
  - Anaemia [None]
  - Pulmonary oedema [None]
  - Pericardial effusion [None]
  - Oedema peripheral [None]
  - Dyspnoea [None]
